FAERS Safety Report 11905927 (Version 1)
Quarter: 2016Q1

REPORT INFORMATION
  Report Type: Spontaneous
  Country: US (occurrence: None)
  Receive Date: 20160108
  Receipt Date: 20160108
  Transmission Date: 20160526
  Serious: Yes (Other)
  Sender: FDA-Public Use
  Company Number: None

PATIENT
  Age: 27 Year
  Sex: Female
  Weight: 43.55 kg

DRUGS (2)
  1. PROACTIV PLUS PORE TARGETING TREATMENT [Suspect]
     Active Substance: BENZOYL PEROXIDE
     Indication: ACNE
     Dosage: APPLIED TO A SURFACE, USUALLY THE SKIN
     Route: 061
     Dates: start: 20160106, end: 20160106
  2. PROACTIV PLUS COMPLEXION PERFECTING HYDRATOR [Suspect]
     Active Substance: SALICYLIC ACID
     Indication: ACNE
     Dosage: APPLIED TO SURFACE, USUALLY THE SKIN
     Route: 061
     Dates: start: 20160106, end: 20160106

REACTIONS (2)
  - Pruritus [None]
  - Swelling face [None]

NARRATIVE: CASE EVENT DATE: 20160106
